FAERS Safety Report 5470231-0 (Version None)
Quarter: 2007Q3

REPORT INFORMATION
  Report Type: 
  Country: None (occurrence: None)
  Receive Date: 20070927
  Receipt Date: 20070924
  Transmission Date: 20080115
  Serious: Yes (Hospitalization)
  Sender: FDA-Public Use
  Company Number: FR-MERCK-0709FRA00064

PATIENT
  Age: 60 Year
  Sex: Male

DRUGS (12)
  1. ZOCOR [Suspect]
     Indication: HYPERCHOLESTEROLAEMIA
     Route: 048
  2. FLUINDIONE [Suspect]
     Indication: ATRIAL FIBRILLATION
     Route: 048
     Dates: start: 20030715, end: 20070718
  3. AMIODARONE HYDROCHLORIDE [Suspect]
     Indication: ATRIAL FIBRILLATION
     Route: 048
  4. LEVOTHYROXINE SODIUM [Suspect]
     Indication: HYPOTHYROIDISM
     Route: 048
  5. METFORMIN HYDROCHLORIDE [Concomitant]
     Indication: DIABETES MELLITUS
     Route: 048
  6. HYDROXYZINE HYDROCHLORIDE [Concomitant]
     Route: 048
  7. NICORANDIL [Concomitant]
     Route: 048
  8. ESOMEPRAZOLE MAGNESIUM [Concomitant]
     Route: 048
  9. RAMIPRIL [Concomitant]
     Route: 048
  10. NITROGLYCERIN [Concomitant]
     Route: 061
  11. FUROSEMIDE [Concomitant]
     Route: 048
  12. INSULIN HUMAN, ISOPHANE [Concomitant]
     Indication: DIABETES MELLITUS
     Route: 058

REACTIONS (1)
  - HAEMORRHAGE [None]
